FAERS Safety Report 21387223 (Version 1)
Quarter: 2022Q3

REPORT INFORMATION
  Report Type: Spontaneous
  Country: CA (occurrence: CA)
  Receive Date: 20220928
  Receipt Date: 20220928
  Transmission Date: 20221027
  Serious: Yes (Hospitalization)
  Sender: FDA-Public Use
  Company Number: CA-BAYER-2022P015519

PATIENT
  Age: 78 Year
  Sex: Male
  Weight: 97.506 kg

DRUGS (3)
  1. GADOBUTROL [Suspect]
     Active Substance: GADOBUTROL
     Indication: Magnetic resonance imaging head
     Dosage: UNK UNK, ONCE
     Route: 042
     Dates: start: 20220919, end: 20220919
  2. GADOBUTROL [Suspect]
     Active Substance: GADOBUTROL
     Indication: Aneurysm
  3. GADOBUTROL [Suspect]
     Active Substance: GADOBUTROL
     Indication: Meningioma

REACTIONS (9)
  - Feeling hot [Recovered/Resolved]
  - Pruritus [Recovered/Resolved]
  - Erythema [Recovered/Resolved]
  - Dizziness [Recovered/Resolved]
  - Eye movement disorder [Recovered/Resolved]
  - Seizure [Recovered/Resolved]
  - Unresponsive to stimuli [Recovered/Resolved]
  - Abdominal pain [Recovered/Resolved]
  - Abdominal distension [Recovered/Resolved]

NARRATIVE: CASE EVENT DATE: 20220919
